FAERS Safety Report 16811816 (Version 1)
Quarter: 2019Q3

REPORT INFORMATION
  Report Type: Spontaneous
  Country: FI (occurrence: FI)
  Receive Date: 20190916
  Receipt Date: 20190916
  Transmission Date: 20191005
  Serious: Yes (Other)
  Sender: FDA-Public Use
  Company Number: FI-MYLANLABS-2019M1085729

PATIENT
  Age: 62 Year
  Sex: Female

DRUGS (4)
  1. CANDESARTAN. [Suspect]
     Active Substance: CANDESARTAN
     Indication: HYPERTENSION
     Dosage: 1 DOSAGE FORM, QD
     Route: 048
  2. ORIDIP (LERCANIDIPINE HYDROCHLORIDE) [Interacting]
     Active Substance: LERCANIDIPINE HYDROCHLORIDE
     Indication: HYPERTENSION
     Dosage: 1 DOSAGE FORM, QD IN THE MORNING
     Route: 048
  3. CANDESARTAN. [Suspect]
     Active Substance: CANDESARTAN
     Indication: HYPERTENSION
     Dosage: 1 DF, QD (STRENGTH- 8 MG AND 16 MG)
     Route: 048
     Dates: start: 201808
  4. MELATONIN ORION [Interacting]
     Active Substance: MELATONIN
     Indication: SLEEP DISORDER
     Dosage: 1 DOSAGE FORM, QD
     Route: 048
     Dates: start: 20190121, end: 20190121

REACTIONS (5)
  - Headache [Unknown]
  - Dermatitis [Unknown]
  - Drug interaction [Unknown]
  - Blood pressure increased [Recovered/Resolved]
  - Seizure [Unknown]

NARRATIVE: CASE EVENT DATE: 20190122
